FAERS Safety Report 18507965 (Version 4)
Quarter: 2021Q1

REPORT INFORMATION
  Report Type: Spontaneous
  Country: US (occurrence: US)
  Receive Date: 20201116
  Receipt Date: 20210216
  Transmission Date: 20210419
  Serious: Yes (Other)
  Sender: FDA-Public Use
  Company Number: US-PFIZER INC-2020061370

PATIENT
  Age: 63 Year
  Sex: Female

DRUGS (3)
  1. LYRICA [Suspect]
     Active Substance: PREGABALIN
     Indication: BACK PAIN
  2. LYRICA [Suspect]
     Active Substance: PREGABALIN
     Indication: SCIATICA
     Dosage: 100 MG, 2X/DAY
     Route: 048
     Dates: start: 2015
  3. LYRICA [Suspect]
     Active Substance: PREGABALIN
     Indication: NERVE INJURY

REACTIONS (7)
  - Visual impairment [Unknown]
  - Nerve injury [Not Recovered/Not Resolved]
  - Joint injury [Not Recovered/Not Resolved]
  - Muscle spasms [Unknown]
  - Visual field defect [Not Recovered/Not Resolved]
  - Fall [Not Recovered/Not Resolved]
  - Somnambulism [Unknown]
